FAERS Safety Report 18173797 (Version 1)
Quarter: 2020Q3

REPORT INFORMATION
  Report Type: Report from Study
  Country: US (occurrence: US)
  Receive Date: 20200819
  Receipt Date: 20200819
  Transmission Date: 20201103
  Serious: Yes (Death)
  Sender: FDA-Public Use
  Company Number: US-ACTELION-A-NJ2020-207340

PATIENT
  Sex: Female
  Weight: 73.47 kg

DRUGS (4)
  1. OPSUMIT [Suspect]
     Active Substance: MACITENTAN
     Indication: PULMONARY HYPERTENSION
     Dosage: 10 MG, QD
     Route: 048
  2. TADALAFIL. [Concomitant]
     Active Substance: TADALAFIL
  3. ELIQUIS [Concomitant]
     Active Substance: APIXABAN
  4. REMODULIN [Concomitant]
     Active Substance: TREPROSTINIL

REACTIONS (8)
  - Functional gastrointestinal disorder [Unknown]
  - Scleroderma [Unknown]
  - Multi-organ disorder [Unknown]
  - Skin disorder [Unknown]
  - Death [Fatal]
  - Rheumatoid arthritis [Unknown]
  - Hospice care [Unknown]
  - Condition aggravated [Unknown]
